FAERS Safety Report 6443935-0 (Version None)
Quarter: 2009Q4

REPORT INFORMATION
  Report Type: 
  Country: None (occurrence: None)
  Receive Date: 20091113
  Receipt Date: 20091028
  Transmission Date: 20100525
  Serious: Yes (Other)
  Sender: FDA-Public Use
  Company Number: 426450

PATIENT
  Age: 8 Year
  Sex: Male
  Weight: 38 kg

DRUGS (7)
  1. DEXTROSE 5% IN PLASTIC CONTAINER [Suspect]
     Indication: DRUG USE FOR UNKNOWN INDICATION
     Dosage: 80 ML, 1 HOUR, INTRAVENOUS
     Route: 042
  2. SODIUM CHLORIDE 0.9% [Suspect]
     Indication: DRUG USE FOR UNKNOWN INDICATION
     Dosage: 500ML, EVERY 12 HOURS, INTRAVENOUS
     Route: 042
  3. DILANTIN [Suspect]
     Indication: DRUG USE FOR UNKNOWN INDICATION
     Dosage: 800ML, ONCE, INTRAVENOUS
     Route: 042
  4. (CLOBAZAM) [Concomitant]
  5. KEPPRA [Concomitant]
  6. TOPAMAX [Concomitant]
  7. (VIGABATRIN) [Concomitant]

REACTIONS (1)
  - PURPLE GLOVE SYNDROME [None]
